FAERS Safety Report 5293869-2 (Version None)
Quarter: 2007Q2

REPORT INFORMATION
  Report Type: 
  Country: None (occurrence: None)
  Receive Date: 20070411
  Receipt Date: 20070331
  Transmission Date: 20071010
  Serious: Yes (Other)
  Sender: FDA-Public Use
  Company Number: US-PFIZER INC-2007015467

PATIENT
  Sex: Male
  Weight: 106.1 kg

DRUGS (1)
  1. CHANTIX [Suspect]
     Indication: EX-SMOKER

REACTIONS (4)
  - DRUG WITHDRAWAL SYNDROME [None]
  - ELECTROCARDIOGRAM T WAVE ABNORMAL [None]
  - SINUS TACHYCARDIA [None]
  - TOBACCO WITHDRAWAL SYMPTOMS [None]
